FAERS Safety Report 7508033-3 (Version None)
Quarter: 2011Q2

REPORT INFORMATION
  Report Type: 
  Country: None (occurrence: None)
  Receive Date: 20110527
  Receipt Date: 20110517
  Transmission Date: 20111010
  Serious: Yes (Hospitalization, Other)
  Sender: FDA-Public Use
  Company Number: US-ELI_LILLY_AND_COMPANY-US201104004011

PATIENT
  Sex: Female

DRUGS (24)
  1. MUCINEX [Concomitant]
  2. FISH OIL [Concomitant]
  3. LIDODERM [Concomitant]
  4. SIMVASTATIN [Concomitant]
  5. ALIGN [Concomitant]
  6. XOPENEX [Concomitant]
  7. TYLENOL (CAPLET) [Concomitant]
  8. MIRALAX [Concomitant]
  9. NEXIUM [Concomitant]
  10. SERTRALINE HYDROCHLORIDE [Concomitant]
  11. GABAPENTIN [Concomitant]
  12. M.V.I. [Concomitant]
  13. FLUTICASONE PROPIONATE [Concomitant]
  14. FORTEO [Suspect]
     Dosage: 20 UG, QD
     Route: 058
     Dates: start: 20100421
  15. BACLOFEN [Concomitant]
  16. ADVAIR DISKUS 100/50 [Concomitant]
  17. VALIUM [Concomitant]
  18. PULMOCARE [Concomitant]
  19. SPIRIVA [Concomitant]
  20. CALCIUM CARBONATE [Concomitant]
  21. AMBIEN [Concomitant]
  22. VITAMIN B-12 [Concomitant]
  23. AVONEX [Concomitant]
  24. PREDNISONE [Concomitant]

REACTIONS (6)
  - CHRONIC OBSTRUCTIVE PULMONARY DISEASE [None]
  - MUSCULOSKELETAL DISORDER [None]
  - URINARY TRACT INFECTION [None]
  - ASTHENIA [None]
  - MULTIPLE SCLEROSIS [None]
  - BRONCHITIS [None]
